FAERS Safety Report 11390898 (Version 1)
Quarter: 2015Q3

REPORT INFORMATION
  Report Type: Spontaneous
  Country: US (occurrence: US)
  Receive Date: 20150818
  Receipt Date: 20150818
  Transmission Date: 20151125
  Serious: Yes (Hospitalization)
  Sender: FDA-Public Use
  Company Number: US-ASTRAZENECA-2015SE78283

PATIENT
  Sex: Female
  Weight: 59.4 kg

DRUGS (9)
  1. ZOPANEX [Concomitant]
     Dosage: SOMETIMES WILL TAKE AN EXTRA DOSE IF SHE IS IN DISTRESS
     Route: 055
  2. LASIX [Concomitant]
     Active Substance: FUROSEMIDE
     Indication: PERICARDIAL EFFUSION
  3. HEART MEDICATIONS [Concomitant]
  4. PROTONIX [Concomitant]
     Active Substance: PANTOPRAZOLE SODIUM
     Indication: GASTROOESOPHAGEAL REFLUX DISEASE
  5. LOSARTAN. [Concomitant]
     Active Substance: LOSARTAN
     Indication: HEART RATE IRREGULAR
     Dates: start: 201507
  6. ZOPANEX [Concomitant]
     Dosage: THREE TIMES A DAY
     Route: 055
  7. SYMBICORT [Suspect]
     Active Substance: BUDESONIDE\FORMOTEROL FUMARATE DIHYDRATE
     Dosage: 80/4.5, 1 PUFF A DAY
     Route: 055
     Dates: start: 2015, end: 2015
  8. BABY ASPRIN [Concomitant]
     Active Substance: ASPIRIN
     Indication: PROPHYLAXIS
     Route: 048
     Dates: start: 2005
  9. LOSARTAN. [Concomitant]
     Active Substance: LOSARTAN
     Indication: PERICARDIAL EFFUSION
     Dates: start: 201507

REACTIONS (11)
  - Adverse reaction [Recovered/Resolved]
  - General physical condition abnormal [Recovered/Resolved]
  - Cough [Unknown]
  - Intentional product use issue [Unknown]
  - Pyrexia [Recovered/Resolved]
  - Throat tightness [Unknown]
  - Wheezing [Recovered/Resolved]
  - Pneumonia [Recovered/Resolved]
  - Haemoglobin decreased [Unknown]
  - Hypoacusis [Unknown]
  - Oropharyngeal pain [Unknown]
